FAERS Safety Report 9470981 (Version 1)
Quarter: 2013Q3

REPORT INFORMATION
  Report Type: Spontaneous
  Country: US (occurrence: US)
  Receive Date: 20130822
  Receipt Date: 20130822
  Transmission Date: 20140515
  Serious: Yes (Hospitalization)
  Sender: FDA-Public Use
  Company Number: US-JNJFOC-20130808569

PATIENT
  Age: 37 Year
  Sex: Female

DRUGS (2)
  1. INVEGA SUSTENNA [Suspect]
     Indication: PRODUCT USED FOR UNKNOWN INDICATION
     Route: 030
     Dates: start: 201307
  2. PREDNISONE [Suspect]
     Indication: PNEUMONIA
     Dosage: 50 MG IN THE MORNING
     Route: 065
     Dates: start: 20130813

REACTIONS (2)
  - Pneumonia [Unknown]
  - Mental disorder [Unknown]
